FAERS Safety Report 7269141-8 (Version None)
Quarter: 2011Q1

REPORT INFORMATION
  Report Type: 
  Country: None (occurrence: None)
  Receive Date: 20110202
  Receipt Date: 20080815
  Transmission Date: 20110831
  Serious: No
  Sender: FDA-Public Use
  Company Number: 2008BI021324

PATIENT
  Age: 37 Year
  Sex: Female

DRUGS (2)
  1. TYSABRI [Suspect]
     Indication: MULTIPLE SCLEROSIS
     Route: 042
     Dates: start: 20061211, end: 20070122
  2. TYSABRI [Suspect]
     Route: 042
     Dates: start: 20080714

REACTIONS (7)
  - INFLUENZA LIKE ILLNESS [None]
  - FATIGUE [None]
  - NAUSEA [None]
  - DECREASED APPETITE [None]
  - SENSATION OF HEAVINESS [None]
  - FEELING HOT [None]
  - ARTHRALGIA [None]
